FAERS Safety Report 21242078 (Version 3)
Quarter: 2022Q4

REPORT INFORMATION
  Report Type: Spontaneous
  Country: US (occurrence: US)
  Receive Date: 20220823
  Receipt Date: 20221003
  Transmission Date: 20230113
  Serious: Yes (Other)
  Sender: FDA-Public Use
  Company Number: US-PFIZER INC-PV202200047970

PATIENT
  Age: 60 Year
  Sex: Female

DRUGS (1)
  1. PREMARIN [Suspect]
     Active Substance: ESTROGENS, CONJUGATED
     Dosage: 0.5 G, BLUEBERRY SIZE TO INSIDE OF VAGINA 3X/WEEK
     Route: 067

REACTIONS (3)
  - Multiple sclerosis [Unknown]
  - Cognitive disorder [Unknown]
  - Off label use [Unknown]
